FAERS Safety Report 5767066-8 (Version None)
Quarter: 2008Q2

REPORT INFORMATION
  Report Type: 
  Country: None (occurrence: None)
  Receive Date: 20080606
  Receipt Date: 20080526
  Transmission Date: 20081010
  Serious: Yes (Hospitalization)
  Sender: FDA-Public Use
  Company Number: 2008-01859

PATIENT
  Age: 67 Year
  Sex: Female

DRUGS (8)
  1. VELCADE [Suspect]
     Indication: MULTIPLE MYELOMA
     Dosage: 2.4 MG, INTRAVENOUS
     Route: 042
     Dates: start: 20080123, end: 20080202
  2. DEXAMETHASONE TAB [Suspect]
     Indication: MULTIPLE MYELOMA
     Dosage: 40 MG, ORAL
     Route: 048
     Dates: start: 20080123, end: 20080202
  3. BACTRIM DS [Concomitant]
  4. FOLIC ACID [Concomitant]
  5. VALACYCLOVIR HCL [Concomitant]
  6. RAMIPRIL [Concomitant]
  7. BISOPROLOL FUMARATE [Concomitant]
  8. TRAMADOL HCL [Concomitant]

REACTIONS (1)
  - MENINGITIS PNEUMOCOCCAL [None]
